FAERS Safety Report 16372115 (Version 1)
Quarter: 2019Q2

REPORT INFORMATION
  Report Type: Spontaneous
  Country: US (occurrence: US)
  Receive Date: 20190424
  Receipt Date: 20190424
  Transmission Date: 20190711
  Serious: No
  Sender: FDA-Public Use
  Company Number: None

PATIENT
  Age: 57 Year
  Sex: Female
  Weight: 80.74 kg

DRUGS (4)
  1. CELECOXIB  200 MG CAPS [Suspect]
     Active Substance: CELECOXIB
     Indication: RHEUMATOID ARTHRITIS
     Route: 048
     Dates: start: 201406
  2. CELECOXIB  200 MG CAPS [Suspect]
     Active Substance: CELECOXIB
     Indication: RHEUMATOID ARTHRITIS
  3. ENBREL [Suspect]
     Active Substance: ETANERCEPT
     Indication: RHEUMATOID ARTHRITIS
     Dosage: INJECT 25MG SUBCUTANEOUSLY TWO TIMES A WEEK 72-96 HOURS APART AS DIRECTED *MAY CAUSE DIZZINESS*
     Route: 058
     Dates: start: 201407
  4. ENBREL [Suspect]
     Active Substance: ETANERCEPT
     Indication: RHEUMATOID ARTHRITIS

REACTIONS (2)
  - Gait disturbance [None]
  - Condition aggravated [None]
